FAERS Safety Report 4518730-X (Version None)
Quarter: 2004Q4

REPORT INFORMATION
  Report Type: 
  Country: None (occurrence: None)
  Receive Date: 20041201
  Receipt Date: 20041119
  Transmission Date: 20050328
  Serious: Yes (Hospitalization, Other)
  Sender: FDA-Public Use
  Company Number: 2004093669

PATIENT
  Age: 88 Year
  Sex: Male

DRUGS (5)
  1. ZOLOFT [Suspect]
     Indication: DEPRESSION
     Dates: end: 20041111
  2. ANTIBIOTICS (ANTIBIOTICS) [Suspect]
     Indication: FEELING ABNORMAL
     Dates: start: 20041201
  3. ANTIBIOTICS (ANTIBIOTICS) [Suspect]
     Indication: NASOPHARYNGITIS
     Dates: start: 20041201
  4. LAXATIVES (LAXATIVES) [Suspect]
     Indication: DIARRHOEA
     Dates: end: 20040101
  5. ALL OTHER THERAPEUTIC PRODUCTS (ALL OTHER THERAPEUTIC PRODUCTS) [Concomitant]

REACTIONS (28)
  - ABNORMAL BEHAVIOUR [None]
  - AGITATION [None]
  - ANOREXIA [None]
  - ASTHENIA [None]
  - ATRIAL FIBRILLATION [None]
  - CARDIAC DISORDER [None]
  - CONFUSIONAL STATE [None]
  - CRYING [None]
  - DECREASED INTEREST [None]
  - DEHYDRATION [None]
  - DIARRHOEA [None]
  - DRUG EFFECT DECREASED [None]
  - DRUG WITHDRAWAL SYNDROME [None]
  - DYSARTHRIA [None]
  - FATIGUE [None]
  - FEELING ABNORMAL [None]
  - HYPERSOMNIA [None]
  - IRRITABILITY [None]
  - IRRITABLE BOWEL SYNDROME [None]
  - LISTLESS [None]
  - LOOSE STOOLS [None]
  - MEDICATION ERROR [None]
  - NASOPHARYNGITIS [None]
  - SEDATION [None]
  - SLEEP DISORDER [None]
  - SLEEP TALKING [None]
  - SOMNOLENCE [None]
  - WEIGHT DECREASED [None]
